FAERS Safety Report 8434799-4 (Version None)
Quarter: 2012Q2

REPORT INFORMATION
  Report Type: 
  Country: None (occurrence: None)
  Receive Date: 20120323
  Receipt Date: 20110601
  Transmission Date: 20120825
  Serious: Yes (Hospitalization, Other)
  Sender: FDA-Public Use
  Company Number: 163-21880-11060289

PATIENT
  Age: 62 Year
  Sex: Female

DRUGS (10)
  1. REVLIMID [Suspect]
     Indication: MULTIPLE MYELOMA
     Dosage: 25 MG, 1 IN 1 D, PO, 5 MG, 1 IN 1 D, PO
     Route: 048
     Dates: start: 20100903
  2. REVLIMID [Suspect]
     Indication: MULTIPLE MYELOMA
     Dosage: 25 MG, 1 IN 1 D, PO, 5 MG, 1 IN 1 D, PO
     Route: 048
     Dates: start: 20090801
  3. SYNTHROID [Concomitant]
  4. DOXYCYCLINE HYCLATE (DOXYCYCLINE HYCLATE) [Concomitant]
  5. METFORMIN (METFORMIN) (TABLETS) [Concomitant]
  6. FISH OIL (FISH OIL) (CAPSULES) [Concomitant]
  7. HYDROCHLOROTHIAZIDE [Concomitant]
  8. CALCIUM (CALCIUM) (TABLETS) [Concomitant]
  9. NAPROXEN (NAPROXEN) (TABLETS) [Concomitant]
  10. POTASSIUM (POTASSIUM) (TABLETS) [Concomitant]

REACTIONS (2)
  - MENINGITIS VIRAL [None]
  - NEUTROPENIA [None]
